FAERS Safety Report 7577486-7 (Version None)
Quarter: 2011Q2

REPORT INFORMATION
  Report Type: 
  Country: None (occurrence: None)
  Receive Date: 20110628
  Receipt Date: 20110606
  Transmission Date: 20111010
  Serious: Yes (Hospitalization)
  Sender: FDA-Public Use
  Company Number: US-BAYER-201030160NA

PATIENT
  Age: 20 Year
  Sex: Female
  Weight: 58.957 kg

DRUGS (6)
  1. YASMIN [Suspect]
     Indication: ACNE
  2. ACYCLOVIR [Concomitant]
     Dosage: 300 MG, UNK
  3. YASMIN [Suspect]
     Indication: CONTRACEPTION
     Route: 048
  4. YASMIN [Suspect]
     Indication: PREMENSTRUAL SYNDROME
  5. TRAMADOL HCL [Concomitant]
     Dosage: 40 MG, QID
     Route: 048
  6. HYDROCODONE BITARTRATE AND ACETAMINOPHEN [Concomitant]
     Indication: PAIN
     Dosage: UNK
     Dates: start: 20080714

REACTIONS (7)
  - GALLBLADDER DISORDER [None]
  - APPENDIX DISORDER [None]
  - PAIN [None]
  - CHOLECYSTITIS CHRONIC [None]
  - BILIARY DYSKINESIA [None]
  - ABDOMINAL PAIN UPPER [None]
  - APPENDICITIS [None]
